FAERS Safety Report 8090782-2 (Version None)
Quarter: 2012Q1

REPORT INFORMATION
  Report Type: 
  Country: None (occurrence: None)
  Receive Date: 20120131
  Receipt Date: 20120120
  Transmission Date: 20120608
  Serious: Yes (Hospitalization)
  Sender: FDA-Public Use
  Company Number: US-BAYER-201030037NA

PATIENT
  Age: 18 Year
  Sex: Female
  Weight: 61 kg

DRUGS (5)
  1. YASMIN [Suspect]
     Indication: PREMATURE MENOPAUSE
     Dosage: UNK UNK, QD
     Route: 048
     Dates: start: 20081201, end: 20090601
  2. YASMIN [Suspect]
  3. ESTRACE [Concomitant]
     Dosage: 1 MG, QD
     Route: 048
  4. PROVERA [Concomitant]
     Dosage: 5 MG, QD
     Route: 048
  5. SYNTHROID [Concomitant]
     Indication: HYPOTHYROIDISM

REACTIONS (1)
  - DEEP VEIN THROMBOSIS [None]
